FAERS Safety Report 9461638 (Version 4)
Quarter: 2014Q2

REPORT INFORMATION
  Report Type: Spontaneous
  Country: JP (occurrence: JP)
  Receive Date: 20130816
  Receipt Date: 20140418
  Transmission Date: 20141212
  Serious: Yes (Other)
  Sender: FDA-Public Use
  Company Number: JP-AMGEN-JPNSP2013057114

PATIENT
  Age: 38 Year
  Sex: Male
  Weight: 55.5 kg

DRUGS (17)
  1. RANMARK [Suspect]
     Indication: RENAL CANCER
     Dosage: 120 MG, UNK
     Route: 058
     Dates: start: 20130105
  2. ALFAROL [Concomitant]
     Route: 065
  3. TAKEPRON [Concomitant]
     Route: 065
  4. THYRADIN S [Concomitant]
     Route: 065
  5. CALCIUM LACTATE [Concomitant]
     Route: 065
  6. CELECOX [Concomitant]
     Route: 065
  7. MAGMITT [Concomitant]
     Route: 065
  8. PYRINAZIN [Concomitant]
     Route: 065
  9. ZYPREXA [Concomitant]
     Route: 065
  10. BI SIFROL [Concomitant]
     Route: 065
  11. FENTOS [Concomitant]
     Route: 065
  12. SAXIZON [Concomitant]
     Route: 041
     Dates: start: 20131227, end: 20131228
  13. SUTENT [Concomitant]
     Dosage: 4 DF, QD
     Route: 048
     Dates: start: 20140123
  14. CELECOXIB [Concomitant]
     Route: 065
  15. RIKKUNSHITO                        /08041001/ [Concomitant]
     Route: 065
  16. FENTANYL CITRATE [Concomitant]
     Dosage: EVERY
     Route: 065
  17. SUNITINIB [Concomitant]
     Dosage: 4 DF, QD
     Route: 048
     Dates: start: 20140123

REACTIONS (1)
  - Osteonecrosis of jaw [Recovering/Resolving]
